FAERS Safety Report 9045218 (Version 1)
Quarter: 2013Q1

REPORT INFORMATION
  Report Type: Report from Study
  Country: US (occurrence: US)
  Receive Date: 20130130
  Receipt Date: 20130130
  Transmission Date: 20140127
  Serious: No
  Sender: FDA-Public Use
  Company Number: US-ABBOTT-12P-163-0954878-00

PATIENT
  Age: 23 None
  Sex: Male
  Weight: 57.66 kg

DRUGS (23)
  1. HUMIRA 40 MG/0.8 ML PEN [Suspect]
     Indication: CROHN^S DISEASE
     Route: 058
  2. HUMIRA 40 MG/0.8 ML PEN [Suspect]
     Dosage: SECOND LOADING DOSE
     Route: 058
     Dates: start: 20120629, end: 20120629
  3. HUMIRA 40 MG/0.8 ML PEN [Suspect]
     Dosage: FIRST LOADING DOSE
     Route: 058
     Dates: start: 20120615, end: 20120615
  4. METHOTREXATE [Concomitant]
     Indication: CROHN^S DISEASE
     Route: 048
     Dates: start: 2012
  5. CYMBALTA [Concomitant]
     Indication: DEPRESSION
  6. OTHER THERAPEUTIC PRODUCTS [Concomitant]
     Indication: PRODUCT USED FOR UNKNOWN INDICATION
  7. PERCOCET [Concomitant]
     Indication: PAIN
     Route: 048
  8. PANTOPRAZOLE [Concomitant]
     Indication: PRODUCT USED FOR UNKNOWN INDICATION
     Route: 048
  9. PROCHLORPERAZINE [Concomitant]
     Indication: NAUSEA
     Dosage: 1 IN 4 HRS, AS NEEDED
     Route: 048
  10. PROCHLORPERAZINE [Concomitant]
     Indication: VOMITING
  11. COMPAZINE [Concomitant]
     Indication: PRODUCT USED FOR UNKNOWN INDICATION
  12. OXYCODONE [Concomitant]
     Indication: PAIN
     Dosage: 1 IN 4 HRS, AS NEEDED
     Route: 048
  13. VITAMIN B COMPLEX [Concomitant]
     Indication: MALABSORPTION
  14. CALCIUM [Concomitant]
     Indication: MALABSORPTION
  15. CENTRUM [Concomitant]
     Indication: MALABSORPTION
  16. COLESTID [Concomitant]
     Indication: PRODUCT USED FOR UNKNOWN INDICATION
  17. VITAMIN D3 [Concomitant]
     Indication: MALABSORPTION
  18. FOLIC ACID [Concomitant]
     Indication: PRODUCT USED FOR UNKNOWN INDICATION
  19. LOPERAMIDE [Concomitant]
     Indication: PRODUCT USED FOR UNKNOWN INDICATION
  20. PROTONIX [Concomitant]
     Indication: PRODUCT USED FOR UNKNOWN INDICATION
  21. VALIUM [Concomitant]
     Indication: PRODUCT USED FOR UNKNOWN INDICATION
  22. VITAMIN B12 [Concomitant]
     Indication: MALABSORPTION
  23. TRIDERM [Concomitant]
     Indication: PRODUCT USED FOR UNKNOWN INDICATION
     Route: 061

REACTIONS (22)
  - Injection site pain [Not Recovered/Not Resolved]
  - Rash [Not Recovered/Not Resolved]
  - Diarrhoea [Not Recovered/Not Resolved]
  - Nausea [Not Recovered/Not Resolved]
  - Vomiting [Not Recovered/Not Resolved]
  - Petechiae [Not Recovered/Not Resolved]
  - Vomiting [Not Recovered/Not Resolved]
  - Fatigue [Not Recovered/Not Resolved]
  - Failure to thrive [Not Recovered/Not Resolved]
  - Decreased appetite [Not Recovered/Not Resolved]
  - Depression [Not Recovered/Not Resolved]
  - Arthralgia [Not Recovered/Not Resolved]
  - Intestinal stenosis [Recovered/Resolved]
  - Somnolence [Not Recovered/Not Resolved]
  - Fatigue [Not Recovered/Not Resolved]
  - Chills [Not Recovered/Not Resolved]
  - Injection site rash [Not Recovered/Not Resolved]
  - Injection site haemorrhage [Recovered/Resolved]
  - Injection site haemorrhage [Not Recovered/Not Resolved]
  - Injection site pain [Recovering/Resolving]
  - Haematochezia [Not Recovered/Not Resolved]
  - Drug ineffective [Not Recovered/Not Resolved]
